FAERS Safety Report 6135199-2 (Version None)
Quarter: 2009Q1

REPORT INFORMATION
  Report Type: 
  Country: None (occurrence: None)
  Receive Date: 20090327
  Receipt Date: 20090317
  Transmission Date: 20090719
  Serious: Yes (Hospitalization)
  Sender: FDA-Public Use
  Company Number: GR-JNJFOC-20090304219

PATIENT
  Sex: Female
  Weight: 95 kg

DRUGS (2)
  1. REMICADE [Suspect]
     Indication: CROHN'S DISEASE
     Route: 042
  2. SALOFALK [Concomitant]
     Indication: COLITIS
     Route: 054

REACTIONS (6)
  - BRONCHITIS [None]
  - CROHN'S DISEASE [None]
  - OEDEMA PERIPHERAL [None]
  - ORAL FUNGAL INFECTION [None]
  - PERICARDITIS [None]
  - PLEURISY [None]
